FAERS Safety Report 14404139 (Version 2)
Quarter: 2018Q4

REPORT INFORMATION
  Report Type: Spontaneous
  Country: US (occurrence: US)
  Receive Date: 20180117
  Receipt Date: 20181010
  Transmission Date: 20190204
  Serious: No
  Sender: FDA-Public Use
  Company Number: US-PFIZER INC-2018022565

PATIENT
  Age: 87 Year
  Sex: Male
  Weight: 88.45 kg

DRUGS (1)
  1. BUMETANIDE. [Suspect]
     Active Substance: BUMETANIDE
     Indication: FLUID OVERLOAD
     Dosage: 1 MG, 2X/DAY
     Dates: start: 2017

REACTIONS (1)
  - Drug ineffective [Recovered/Resolved]
